FAERS Safety Report 4483709-3 (Version None)
Quarter: 2004Q4

REPORT INFORMATION
  Report Type: 
  Country: None (occurrence: None)
  Receive Date: 20041022
  Receipt Date: 20041022
  Transmission Date: 20050328
  Serious: Yes (Life-Threatening, Hospitalization)
  Sender: FDA-Public Use
  Company Number: None

PATIENT
  Age: 65 Year
  Sex: Male
  Weight: 82.5547 kg

DRUGS (1)
  1. TORADOL [Suspect]
     Indication: POST PROCEDURAL PAIN
     Dosage: 40 MG IV
     Route: 042

REACTIONS (1)
  - HAEMARTHROSIS [None]
